FAERS Safety Report 16036254 (Version 1)
Quarter: 2019Q1

REPORT INFORMATION
  Report Type: Spontaneous
  Country: PL (occurrence: PL)
  Receive Date: 20190305
  Receipt Date: 20190305
  Transmission Date: 20190418
  Serious: Yes (Other)
  Sender: FDA-Public Use
  Company Number: PL-PFIZER INC-2019091242

PATIENT
  Age: 60 Year
  Sex: Male
  Weight: 101 kg

DRUGS (34)
  1. CYCLOPHOSPHAMIDE. [Suspect]
     Active Substance: CYCLOPHOSPHAMIDE
     Dosage: 1 DAY OF 4 CYCLE
     Route: 042
     Dates: start: 20170608
  2. VINCRISTINE SULFATE. [Suspect]
     Active Substance: VINCRISTINE SULFATE
     Dosage: 2 DAY OF 2 CYCLE OF CHEMOTHERAPY
     Route: 065
     Dates: start: 20180424
  3. CYTARABINE. [Suspect]
     Active Substance: CYTARABINE
     Indication: DIFFUSE LARGE B-CELL LYMPHOMA
     Dosage: UNK
     Route: 065
  4. DOXORUBICIN HCL [Suspect]
     Active Substance: DOXORUBICIN HYDROCHLORIDE
     Dosage: 2 DAY OF 2 CYCLE OF CHEMOTHERAPY
     Route: 065
     Dates: start: 20170424
  5. MABTHERA [Suspect]
     Active Substance: RITUXIMAB
     Dosage: 700 MG, UNK
     Route: 042
     Dates: start: 20180719
  6. ZARZIO [Concomitant]
     Active Substance: FILGRASTIM
     Dosage: 30 MILLION IU, UNK (1 AMPOULE)
     Route: 058
     Dates: start: 20170402
  7. ENCORTON [PREDNISONE] [Concomitant]
     Dosage: 20 MG, UNK (3-2-0)
     Route: 048
  8. MILURIT [Concomitant]
     Active Substance: ALLOPURINOL
     Dosage: 100 MG, 2X/DAY (1-0-1, 7 DAYS)
     Route: 048
  9. MABTHERA [Suspect]
     Active Substance: RITUXIMAB
     Dosage: THIRD CYCLE OF TREATMENT
     Route: 042
     Dates: start: 20170515
  10. MABTHERA [Suspect]
     Active Substance: RITUXIMAB
     Dosage: 4TH CYCLE OF TREATMENT
     Route: 042
     Dates: start: 20170607
  11. VINCRISTINE SULFATE. [Suspect]
     Active Substance: VINCRISTINE SULFATE
     Indication: DIFFUSE LARGE B-CELL LYMPHOMA
     Dosage: 2 DAY OF 1 CYCLE OF R-CHOP CHEMOTHERAPY
     Route: 065
     Dates: start: 20170209
  12. NYSTATIN. [Concomitant]
     Active Substance: NYSTATIN
     Dosage: 1-1-1, 7 DAYS, 3X/DAY
     Route: 048
  13. PREDNISONE. [Suspect]
     Active Substance: PREDNISONE
     Dosage: 1 DAY OF THIRD CYCLE OF TREATMENT
     Route: 048
     Dates: start: 20170516
  14. CIPRONEX [CIPROFLOXACIN] [Concomitant]
     Dosage: 1-0-1, 7 DAYS
     Route: 048
  15. DOXORUBICIN HCL [Suspect]
     Active Substance: DOXORUBICIN HYDROCHLORIDE
     Dosage: 1 DAY OF 4 CYCLE
     Route: 042
     Dates: start: 20170608
  16. PREDNISONE. [Suspect]
     Active Substance: PREDNISONE
     Indication: DIFFUSE LARGE B-CELL LYMPHOMA
     Dosage: 1 DAY OF 1 CYCLE OF R-CHOP CHEMOTHERAPY
     Route: 065
     Dates: start: 20170208
  17. PREDNISONE. [Suspect]
     Active Substance: PREDNISONE
     Dosage: 1 DAY OF 4 CYCLE
     Route: 048
     Dates: start: 20170608
  18. MABTHERA [Suspect]
     Active Substance: RITUXIMAB
     Indication: DIFFUSE LARGE B-CELL LYMPHOMA
     Dosage: 1 CYCLE OF R-CHOP CHEMOTHERAPY, 1 ST
     Route: 042
     Dates: start: 20170208
  19. PLATINOL [Suspect]
     Active Substance: CISPLATIN
     Indication: DIFFUSE LARGE B-CELL LYMPHOMA
     Dosage: UNK
     Route: 065
  20. DOXORUBICIN HCL [Suspect]
     Active Substance: DOXORUBICIN HYDROCHLORIDE
     Dosage: 2 DAY OF 1 CYCLE OF R-CHOP CHEMOTHERAPY
     Route: 065
     Dates: start: 20170209
  21. MABTHERA [Suspect]
     Active Substance: RITUXIMAB
     Dosage: 1 DAY OF 2 CYCLE OF CHEMOTHERAPY
     Route: 042
     Dates: start: 20170423
  22. CYCLOPHOSPHAMIDE. [Suspect]
     Active Substance: CYCLOPHOSPHAMIDE
     Indication: DIFFUSE LARGE B-CELL LYMPHOMA
     Dosage: 2 DAY OF 1 CYCLE OF R-CHOP
     Route: 042
     Dates: start: 20170209
  23. CYCLOPHOSPHAMIDE. [Suspect]
     Active Substance: CYCLOPHOSPHAMIDE
     Dosage: 2 DAY OF 2 CYCLE
     Route: 042
     Dates: start: 20170424
  24. DEXAMETHASONE. [Suspect]
     Active Substance: DEXAMETHASONE
     Indication: DIFFUSE LARGE B-CELL LYMPHOMA
     Dosage: UNK
     Route: 065
  25. ENCORTON [PREDNISONE] [Concomitant]
     Dosage: 100 MG, 1X/DAY
     Route: 048
     Dates: start: 20170611
  26. PREDNISONE. [Suspect]
     Active Substance: PREDNISONE
     Dosage: 2- 3 DAY OF 2 CYCLE OF CHEMOTHERAPY
     Route: 065
     Dates: start: 20170424
  27. VINCRISTINE SULFATE. [Suspect]
     Active Substance: VINCRISTINE SULFATE
     Dosage: 1 DAY OF 4 CYCLE
     Route: 042
     Dates: start: 20170608
  28. ZARZIO [Concomitant]
     Active Substance: FILGRASTIM
     Dosage: 30 MILLION IU, UNK
     Route: 058
     Dates: start: 20170517
  29. DOXORUBICIN HCL [Suspect]
     Active Substance: DOXORUBICIN HYDROCHLORIDE
     Dosage: 1 DAY OF THIRD CYCLE OF TREATMENT
     Route: 042
     Dates: start: 20170516
  30. MABTHERA [Suspect]
     Active Substance: RITUXIMAB
     Dosage: 700 MG, UNK
     Route: 042
     Dates: start: 20180423
  31. CYCLOPHOSPHAMIDE. [Suspect]
     Active Substance: CYCLOPHOSPHAMIDE
     Dosage: 1 DAY OF THIRD CYCLE OF TREATMENT
     Route: 042
     Dates: start: 20170516
  32. VINCRISTINE SULFATE. [Suspect]
     Active Substance: VINCRISTINE SULFATE
     Dosage: 1 DAY OF THIRD CYCLE OF TREATMENT
     Route: 042
     Dates: start: 20170516
  33. POLPRAZOL [OMEPRAZOLE] [Concomitant]
     Dosage: 1-1-0, 7 DAYS
     Route: 048
  34. ZARZIO [Concomitant]
     Active Substance: FILGRASTIM
     Dosage: 30 MILLION IU, UNK (1 AMPOULE)
     Route: 058
     Dates: start: 20170426

REACTIONS (5)
  - Night sweats [Unknown]
  - Asthenia [Unknown]
  - Neoplasm recurrence [Unknown]
  - Bone marrow failure [Unknown]
  - Splenomegaly [Unknown]

NARRATIVE: CASE EVENT DATE: 201807
